FAERS Safety Report 17045128 (Version 1)
Quarter: 2019Q4

REPORT INFORMATION
  Report Type: Spontaneous
  Country: FR (occurrence: FR)
  Receive Date: 20191118
  Receipt Date: 20191118
  Transmission Date: 20200122
  Serious: Yes (Hospitalization)
  Sender: FDA-Public Use
  Company Number: FR-009507513-1911FRA004307

PATIENT
  Age: 7 Year
  Sex: Male
  Weight: 21 kg

DRUGS (7)
  1. AERIUS (DESLORATADINE) [Suspect]
     Active Substance: DESLORATADINE
     Indication: PAIN MANAGEMENT
     Dosage: STRENGTH OF 0.5 MILLIGRAM/ MILLILITRE, SYRUP
     Route: 048
     Dates: start: 20191016, end: 20191017
  2. LAROXYL [Suspect]
     Active Substance: AMITRIPTYLINE HYDROCHLORIDE
     Dosage: UNK
     Route: 042
     Dates: start: 20191014, end: 20191017
  3. LAROXYL [Suspect]
     Active Substance: AMITRIPTYLINE HYDROCHLORIDE
     Indication: PAIN MANAGEMENT
     Dosage: 9 MILLIGRAM, EVERYDAY, ORAL SOLUTION FROM 09OCT2019 TO
     Route: 048
     Dates: start: 20191009, end: 20191014
  4. LAROXYL [Suspect]
     Active Substance: AMITRIPTYLINE HYDROCHLORIDE
     Dosage: UNK
     Route: 048
     Dates: start: 20191017
  5. MIDAZOLAM [Suspect]
     Active Substance: MIDAZOLAM HYDROCHLORIDE
     Indication: PAIN MANAGEMENT
     Dosage: 1 MILLILITER, QH
     Route: 041
     Dates: start: 20191015, end: 20191017
  6. MORPHINE SULFATE. [Suspect]
     Active Substance: MORPHINE SULFATE
     Indication: PAIN MANAGEMENT
     Dosage: 20 MICROGRAM PER KILOGRAM, QH
     Route: 042
     Dates: start: 20191015, end: 20191017
  7. KETAMINE HYDROCHLORIDE. [Suspect]
     Active Substance: KETAMINE HYDROCHLORIDE
     Indication: PAIN MANAGEMENT
     Dosage: 1.6 MILLILITER, QH
     Route: 041
     Dates: start: 20191015, end: 20191017

REACTIONS (2)
  - Hallucination, auditory [Recovering/Resolving]
  - Incoherent [Recovering/Resolving]

NARRATIVE: CASE EVENT DATE: 20191016
